FAERS Safety Report 8082522-8 (Version None)
Quarter: 2012Q1

REPORT INFORMATION
  Report Type: 
  Country: None (occurrence: None)
  Receive Date: 20120127
  Receipt Date: 20110221
  Transmission Date: 20120608
  Serious: No
  Sender: FDA-Public Use
  Company Number: US-ABBOTT-11P-163-0706852-00

PATIENT
  Age: 14 Year
  Sex: Male

DRUGS (6)
  1. CALCIUM CITRATE [Concomitant]
     Indication: CROHN'S DISEASE
     Dosage: DAILY
  2. PENTASA [Concomitant]
     Indication: CROHN'S DISEASE
     Dosage: 500 MG -THREE TIMES A DAY
  3. HUMIRA [Suspect]
     Indication: CROHN'S DISEASE
     Dates: start: 20101210
  4. FE SULFATE [Concomitant]
     Indication: CROHN'S DISEASE
     Dosage: 324 MG DAILY
  5. CYPROHEPTADINE HCL [Concomitant]
     Indication: CROHN'S DISEASE
     Dosage: 4 MG- TWO TIMES A DAY
  6. MULTIVITAMIN [Concomitant]
     Indication: PRODUCT USED FOR UNKNOWN INDICATION
     Dosage: DAILY

REACTIONS (1)
  - ERYTHEMA MULTIFORME [None]
